FAERS Safety Report 8100479-8 (Version None)
Quarter: 2012Q1

REPORT INFORMATION
  Report Type: 
  Country: None (occurrence: None)
  Receive Date: 20120129
  Receipt Date: 20111110
  Transmission Date: 20120608
  Serious: No
  Sender: FDA-Public Use
  Company Number: US-ABBOTT-11P-163-0873194-00

PATIENT
  Sex: Female
  Weight: 63.56 kg

DRUGS (7)
  1. NEURONTIN [Concomitant]
     Indication: PAIN
  2. VITAMIN B-12 [Concomitant]
     Indication: VITAMIN SUPPLEMENTATION
  3. ATIVAN [Concomitant]
     Indication: ANXIETY
  4. METHOTREXATE [Concomitant]
     Indication: RHEUMATOID ARTHRITIS
  5. CYMBALTA [Concomitant]
     Indication: PAIN
  6. FOLIC ACID [Concomitant]
     Indication: RHEUMATOID ARTHRITIS
  7. HUMIRA [Suspect]
     Indication: RHEUMATOID ARTHRITIS
     Dates: start: 20111001

REACTIONS (1)
  - INJECTION SITE PAIN [None]
